FAERS Safety Report 18785529 (Version 1)
Quarter: 2021Q1

REPORT INFORMATION
  Report Type: Spontaneous
  Country: US (occurrence: US)
  Receive Date: 20210125
  Receipt Date: 20210125
  Transmission Date: 20210419
  Serious: Yes (Other)
  Sender: FDA-Public Use
  Company Number: US-PFIZER INC-2020142193

PATIENT
  Age: 84 Year
  Sex: Female
  Weight: 65.77 kg

DRUGS (3)
  1. MIDODRINE [Concomitant]
     Active Substance: MIDODRINE
     Dosage: UNK
  2. SYMBICORT [Concomitant]
     Active Substance: BUDESONIDE\FORMOTEROL FUMARATE DIHYDRATE
     Dosage: UNK, 160/4.5
  3. VYNDAMAX [Suspect]
     Active Substance: TAFAMIDIS
     Indication: CARDIAC AMYLOIDOSIS
     Dosage: 61 MG, 1X/DAY

REACTIONS (2)
  - Sarcoidosis [Unknown]
  - Visual impairment [Unknown]
